FAERS Safety Report 4774403-X (Version None)
Quarter: 2005Q3

REPORT INFORMATION
  Report Type: 
  Country: None (occurrence: None)
  Receive Date: 20050921
  Receipt Date: 20050803
  Transmission Date: 20060218
  Serious: Yes (Hospitalization, Other)
  Sender: FDA-Public Use
  Company Number: GB-BRISTOL-MYERS SQUIBB COMPANY-13064936

PATIENT
  Sex: Male
  Weight: 64 kg

DRUGS (6)
  1. REYATAZ [Suspect]
     Indication: HIV INFECTION
     Route: 048
     Dates: start: 20041202, end: 20050802
  2. VIDEX EC [Suspect]
     Indication: HIV INFECTION
     Route: 048
     Dates: start: 20050627, end: 20050802
  3. RITONAVIR [Suspect]
     Indication: HIV INFECTION
     Route: 048
     Dates: start: 20041202, end: 20050802
  4. ABACAVIR [Concomitant]
     Indication: HIV INFECTION
     Route: 048
     Dates: start: 20050627, end: 20050802
  5. ACYCLOVIR [Concomitant]
     Indication: HERPES ZOSTER
     Route: 048
     Dates: start: 20050627, end: 20050704
  6. TENOFOVIR [Concomitant]
     Indication: HIV INFECTION
     Route: 048
     Dates: start: 20041202, end: 20050626

REACTIONS (5)
  - ABDOMINAL PAIN [None]
  - ANAEMIA [None]
  - HAEMODIALYSIS [None]
  - KAPOSI'S SARCOMA [None]
  - RENAL FAILURE ACUTE [None]
